FAERS Safety Report 6648507-0 (Version None)
Quarter: 2010Q1

REPORT INFORMATION
  Report Type: 
  Country: None (occurrence: None)
  Receive Date: 20100319
  Receipt Date: 20100304
  Transmission Date: 20100710
  Serious: Yes (Hospitalization)
  Sender: FDA-Public Use
  Company Number: AMAG201000151

PATIENT
  Age: 79 Year
  Sex: Female
  Weight: 68.9 kg

DRUGS (11)
  1. FERAHEME [Suspect]
     Indication: IRON DEFICIENCY ANAEMIA
     Dosage: 510 MG, SINGLE, INTRAVENOUS; 510 MG, SINGLE, INTRAVENOUS
     Route: 042
     Dates: start: 20100204, end: 20100204
  2. FERAHEME [Suspect]
     Indication: RENAL FAILURE CHRONIC
     Dosage: 510 MG, SINGLE, INTRAVENOUS; 510 MG, SINGLE, INTRAVENOUS
     Route: 042
     Dates: start: 20100204, end: 20100204
  3. FERAHEME [Suspect]
     Indication: IRON DEFICIENCY ANAEMIA
     Dosage: 510 MG, SINGLE, INTRAVENOUS; 510 MG, SINGLE, INTRAVENOUS
     Route: 042
     Dates: start: 20100217, end: 20100217
  4. FERAHEME [Suspect]
     Indication: RENAL FAILURE CHRONIC
     Dosage: 510 MG, SINGLE, INTRAVENOUS; 510 MG, SINGLE, INTRAVENOUS
     Route: 042
     Dates: start: 20100217, end: 20100217
  5. FERROUS SULFATE TAB [Concomitant]
  6. ATENOLOL [Concomitant]
  7. TIMOLOL MALEATE [Concomitant]
  8. BRIMONIDINE (BRIMONIDINE TARTRATE) [Concomitant]
  9. METFORMIN HCL [Concomitant]
  10. MULTIVITAMIN [Concomitant]
  11. ACIPHEX [Concomitant]

REACTIONS (14)
  - APNOEA [None]
  - BLOOD UREA INCREASED [None]
  - BRADYCARDIA [None]
  - COLD SWEAT [None]
  - EYE ROLLING [None]
  - FAECAL INCONTINENCE [None]
  - HAEMOGLOBIN DECREASED [None]
  - HYPERHIDROSIS [None]
  - HYPERSENSITIVITY [None]
  - HYPOTENSION [None]
  - LIPASE INCREASED [None]
  - OCCULT BLOOD POSITIVE [None]
  - SYNCOPE [None]
  - TROPONIN INCREASED [None]
